FAERS Safety Report 18674667 (Version 3)
Quarter: 2021Q1

REPORT INFORMATION
  Report Type: Spontaneous
  Country: US (occurrence: US)
  Receive Date: 20201229
  Receipt Date: 20210201
  Transmission Date: 20210419
  Serious: No
  Sender: FDA-Public Use
  Company Number: NVSC2020US339973

PATIENT
  Sex: Female

DRUGS (3)
  1. TAFINLAR [Suspect]
     Active Substance: DABRAFENIB MESYLATE
     Indication: THYROID CANCER
     Dosage: 225 MG, QD
     Route: 048
     Dates: start: 20201224
  2. KEYTRUDA [Concomitant]
     Active Substance: PEMBROLIZUMAB
     Indication: PRODUCT USED FOR UNKNOWN INDICATION
     Dosage: UNK
     Route: 065
  3. MEKINIST [Suspect]
     Active Substance: TRAMETINIB DIMETHYL SULFOXIDE
     Indication: THYROID CANCER
     Dosage: 2 MG, QD
     Route: 048
     Dates: start: 20200911

REACTIONS (1)
  - Visual impairment [Unknown]
